FAERS Safety Report 20473206 (Version 2)
Quarter: 2022Q1

REPORT INFORMATION
  Report Type: Spontaneous
  Country: US (occurrence: US)
  Receive Date: 20220215
  Receipt Date: 20220215
  Transmission Date: 20220423
  Serious: Yes (Hospitalization)
  Sender: FDA-Public Use
  Company Number: US-CELGENE-USA-20220203290

PATIENT
  Age: 61 Year
  Sex: Female
  Weight: 49.486 kg

DRUGS (2)
  1. POMALYST [Suspect]
     Active Substance: POMALIDOMIDE
     Indication: Plasma cell myeloma
     Dosage: 4 MG
     Route: 048
     Dates: start: 20210808
  2. POMALYST [Suspect]
     Active Substance: POMALIDOMIDE
     Dosage: 4 MG
     Route: 048
     Dates: start: 202202

REACTIONS (2)
  - COVID-19 [Recovering/Resolving]
  - Weight decreased [Recovering/Resolving]

NARRATIVE: CASE EVENT DATE: 20211101
